FAERS Safety Report 8101844-5 (Version None)
Quarter: 2012Q1

REPORT INFORMATION
  Report Type: 
  Country: None (occurrence: None)
  Receive Date: 20120131
  Receipt Date: 20120126
  Transmission Date: 20120608
  Serious: Yes (Other)
  Sender: FDA-Public Use
  Company Number: PHEH2011US009219

PATIENT
  Sex: Female

DRUGS (4)
  1. VIVELLE-DOT [Suspect]
     Dosage: 0.375 MG, UNK
     Route: 062
  2. VIVELLE-DOT [Suspect]
     Dosage: 0.05 MG, QW2
     Route: 062
  3. VIVELLE-DOT [Suspect]
     Dosage: 0.05 MG, QW2
     Route: 062
  4. PROGESTERONE [Concomitant]
     Dosage: 200 MG, QD

REACTIONS (6)
  - FATIGUE [None]
  - FEELING ABNORMAL [None]
  - DRUG INEFFECTIVE [None]
  - ASTHENIA [None]
  - ARTHRALGIA [None]
  - DYSTHYMIC DISORDER [None]
